FAERS Safety Report 4907014-3 (Version None)
Quarter: 2006Q1

REPORT INFORMATION
  Report Type: 
  Country: None (occurrence: None)
  Receive Date: 20060207
  Receipt Date: 20060130
  Transmission Date: 20060701
  Serious: No
  Sender: FDA-Public Use
  Company Number: ZONI002260

PATIENT
  Age: 7 Year
  Sex: Female
  Weight: 20.5 kg

DRUGS (4)
  1. ZONEGRAN [Suspect]
     Indication: EPILEPSY
     Dosage: 150 MG, 2 IN 1 D, ORAL
     Route: 048
     Dates: start: 20040629
  2. GAMUNEX (IMMUNOGLOBULINS) [Concomitant]
  3. VITAMINS (VITAMINS) [Concomitant]
  4. MINERALS  (MINERALS NOS) [Concomitant]

REACTIONS (4)
  - AGGRESSION [None]
  - COMPLEX PARTIAL SEIZURES [None]
  - FAECAL INCONTINENCE [None]
  - URINARY INCONTINENCE [None]
